FAERS Safety Report 4659872-8 (Version None)
Quarter: 2005Q2

REPORT INFORMATION
  Report Type: 
  Country: None (occurrence: None)
  Receive Date: 20050502
  Receipt Date: 20041227
  Transmission Date: 20051028
  Serious: Yes (Hospitalization)
  Sender: FDA-Public Use
  Company Number: US096625

PATIENT
  Age: 52 Year
  Sex: Female

DRUGS (8)
  1. PROCRIT [Suspect]
     Indication: RENAL FAILURE CHRONIC
     Dates: start: 20041014
  2. LEVOFLOXACIN [Concomitant]
  3. WARFARIN SODIUM [Concomitant]
  4. ONDANSETRON HYDROCHLORIDE [Concomitant]
  5. DIPHENHYDRAMINE HCL [Concomitant]
  6. METHYLPREDNISOLONE SODIUM SUCCINATE [Concomitant]
  7. ACETAMINOPHEN [Concomitant]
  8. HYDROXYZINE HYDROCHLORIDE [Concomitant]

REACTIONS (14)
  - ANOREXIA [None]
  - ATOPY [None]
  - DYSPHAGIA [None]
  - ERYTHEMA [None]
  - FACE OEDEMA [None]
  - FATIGUE [None]
  - HYPERAESTHESIA [None]
  - HYPERSENSITIVITY [None]
  - LETHARGY [None]
  - NAUSEA [None]
  - PYREXIA [None]
  - RASH [None]
  - VISUAL ACUITY REDUCED [None]
  - WHITE BLOOD CELL COUNT INCREASED [None]
